FAERS Safety Report 7825511-8 (Version None)
Quarter: 2011Q4

REPORT INFORMATION
  Report Type: 
  Country: None (occurrence: None)
  Receive Date: 20111019
  Receipt Date: 20111011
  Transmission Date: 20120403
  Serious: Yes (Other)
  Sender: FDA-Public Use
  Company Number: US-VERTEX PHARMACEUTICALS INC.-AE-2011-002239

PATIENT
  Sex: Male
  Weight: 83.99 kg

DRUGS (3)
  1. RIBAVIRIN [Concomitant]
     Indication: HEPATITIS C
     Route: 048
     Dates: start: 20110924, end: 20110930
  2. PEGASYS [Concomitant]
     Indication: HEPATITIS C
     Route: 058
     Dates: start: 20110924, end: 20110930
  3. INCIVEK [Suspect]
     Indication: HEPATITIS C
     Route: 048
     Dates: start: 20110924, end: 20110930

REACTIONS (5)
  - DEHYDRATION [None]
  - VOMITING [None]
  - DIARRHOEA [None]
  - HAEMORRHOIDAL HAEMORRHAGE [None]
  - NAUSEA [None]
